FAERS Safety Report 8496524-0 (Version None)
Quarter: 2012Q3

REPORT INFORMATION
  Report Type: 
  Country: None (occurrence: None)
  Receive Date: 20120709
  Receipt Date: 20120629
  Transmission Date: 20120928
  Serious: No
  Sender: FDA-Public Use
  Company Number: US-B.I. PHARMACEUTICALS,INC./RIDGEFIELD-2012-BP-14792BP

PATIENT
  Sex: Female

DRUGS (1)
  1. ZANTAC 150 [Suspect]
     Dates: start: 20120627, end: 20120627

REACTIONS (5)
  - ERYTHEMA [None]
  - ABDOMINAL PAIN UPPER [None]
  - PRURITUS [None]
  - LIP SWELLING [None]
  - DYSPNOEA [None]
